FAERS Safety Report 4976850-X (Version None)
Quarter: 2006Q2

REPORT INFORMATION
  Report Type: 
  Country: None (occurrence: None)
  Receive Date: 20060413
  Receipt Date: 20060331
  Transmission Date: 20061013
  Serious: Yes (Disabling, Other)
  Sender: FDA-Public Use
  Company Number: 2005171364

PATIENT
  Age: 66 Year
  Sex: Male

DRUGS (14)
  1. MAXAQUIN [Suspect]
     Indication: PROSTATIC DISORDER
     Dosage: 400 MG (1 IN 1 D),
     Dates: start: 19950331
  2. CIPROFLOXACIN [Suspect]
     Indication: ILL-DEFINED DISORDER
     Dosage: 1000 MG (500 MG, 2 IN 1 D),
     Dates: start: 19960502
  3. CIPROFLOXACIN [Suspect]
     Indication: ILL-DEFINED DISORDER
     Dosage: 1000 MG (500 MG, 2 IN 1 D),
     Dates: start: 19991030
  4. CIPROFLOXACIN [Suspect]
     Indication: ILL-DEFINED DISORDER
     Dosage: 1000 MG (500 MG, 2 IN 1 D),
     Dates: start: 20040401
  5. LEVAQUIN [Suspect]
     Indication: ILL-DEFINED DISORDER
     Dates: start: 20001220
  6. LEVAQUIN [Suspect]
     Indication: ILL-DEFINED DISORDER
     Dates: start: 20050205
  7. TEQUIN [Suspect]
     Indication: ILL-DEFINED DISORDER
     Dates: start: 20030308
  8. AVELOX [Suspect]
     Indication: ILL-DEFINED DISORDER
  9. BUSPAR [Concomitant]
  10. RELAFEN [Concomitant]
  11. SEPTRA [Concomitant]
  12. SYMMETREL [Concomitant]
  13. TESTOSTERONE [Concomitant]
  14. PEPCID [Concomitant]

REACTIONS (28)
  - AMNESIA [None]
  - ANXIETY [None]
  - ARRHYTHMIA [None]
  - ARTHRALGIA [None]
  - ATRIAL FIBRILLATION [None]
  - BACK PAIN [None]
  - BLOOD CREATININE INCREASED [None]
  - DEAFNESS [None]
  - DRUG INEFFECTIVE [None]
  - ERECTILE DYSFUNCTION [None]
  - ERYTHEMA [None]
  - EYE PAIN [None]
  - HEPATOCELLULAR DAMAGE [None]
  - IMPAIRED WORK ABILITY [None]
  - INSOMNIA [None]
  - JOINT INJURY [None]
  - MUSCLE SPASMS [None]
  - PAIN [None]
  - PAIN IN EXTREMITY [None]
  - PAIN IN JAW [None]
  - PROSTATIC OPERATION [None]
  - PROSTATIC SPECIFIC ANTIGEN INCREASED [None]
  - RENAL DISORDER [None]
  - ROTATOR CUFF SYNDROME [None]
  - SPERM COUNT ZERO [None]
  - TENDON RUPTURE [None]
  - TINNITUS [None]
  - VISUAL ACUITY REDUCED [None]
